FAERS Safety Report 16222704 (Version 1)
Quarter: 2019Q2

REPORT INFORMATION
  Report Type: Spontaneous
  Country: US (occurrence: US)
  Receive Date: 20190419
  Receipt Date: 20190419
  Transmission Date: 20190711
  Serious: No
  Sender: FDA-Public Use
  Company Number: None

PATIENT
  Age: 60 Year
  Sex: Female
  Weight: 49.5 kg

DRUGS (4)
  1. ZICAM (HOMEOPATHICS) [Suspect]
     Active Substance: HOMEOPATHICS
     Indication: NASAL CONGESTION
     Dosage: ?          QUANTITY:1 DROP(S);?
     Route: 061
     Dates: start: 20150415, end: 20150418
  2. KRILL OIL [Concomitant]
     Active Substance: DIETARY SUPPLEMENT
  3. MULTI VIT [Concomitant]
     Active Substance: VITAMINS
  4. SILICA [Concomitant]
     Active Substance: SILICON DIOXIDE

REACTIONS (3)
  - Product complaint [None]
  - Anosmia [None]
  - Ageusia [None]

NARRATIVE: CASE EVENT DATE: 20150416
